FAERS Safety Report 10300795 (Version 1)
Quarter: 2014Q3

REPORT INFORMATION
  Report Type: Spontaneous
  Country: US (occurrence: US)
  Receive Date: 20140714
  Receipt Date: 20140714
  Transmission Date: 20150326
  Serious: No
  Sender: FDA-Public Use
  Company Number: US-BIOGENIDEC-2014BI062465

PATIENT
  Age: 61 Year
  Sex: Male

DRUGS (4)
  1. BUPROPION HCI [Concomitant]
  2. TECFIDERA [Suspect]
     Active Substance: DIMETHYL FUMARATE
     Indication: MULTIPLE SCLEROSIS
     Route: 048
     Dates: start: 20140418
  3. GABAPENTIN. [Concomitant]
     Active Substance: GABAPENTIN
  4. AMITRIPTYLINE HCI [Concomitant]

REACTIONS (1)
  - Alopecia [Not Recovered/Not Resolved]

NARRATIVE: CASE EVENT DATE: 20140520
